FAERS Safety Report 7884465-9 (Version None)
Quarter: 2011Q4

REPORT INFORMATION
  Report Type: 
  Country: None (occurrence: None)
  Receive Date: 20111102
  Receipt Date: 20111026
  Transmission Date: 20120403
  Serious: Yes (Other)
  Sender: FDA-Public Use
  Company Number: JP-JNJFOC-20111012006

PATIENT
  Sex: Female

DRUGS (6)
  1. CLONAZEPAM [Concomitant]
     Indication: SCHIZOPHRENIA
     Route: 065
  2. NICOTINE [Suspect]
     Indication: SMOKING CESSATION THERAPY
     Dosage: RECENTLY ABOUT SIX PIECES DAILY
     Route: 048
     Dates: start: 20080101
  3. PROMETHAZINE HCL [Concomitant]
     Indication: SCHIZOPHRENIA
     Route: 065
  4. DORAL [Concomitant]
     Indication: SCHIZOPHRENIA
     Route: 065
  5. AMOBAN [Concomitant]
     Indication: SCHIZOPHRENIA
     Route: 065
  6. SILECE [Concomitant]
     Indication: SCHIZOPHRENIA
     Route: 065

REACTIONS (3)
  - NICOTINE DEPENDENCE [None]
  - HALLUCINATION, AUDITORY [None]
  - INTENTIONAL DRUG MISUSE [None]
